FAERS Safety Report 4872033-2 (Version None)
Quarter: 2006Q1

REPORT INFORMATION
  Report Type: 
  Country: None (occurrence: None)
  Receive Date: 20060104
  Receipt Date: 20051031
  Transmission Date: 20060701
  Serious: Yes (Hospitalization, Other)
  Sender: FDA-Public Use
  Company Number: 2005AP06093

PATIENT
  Age: 17149 Day
  Sex: Female

DRUGS (1)
  1. ZOLADEX [Suspect]
     Indication: ENDOMETRIOSIS
     Route: 058
     Dates: start: 20050613, end: 20051101

REACTIONS (9)
  - BLOOD PRESSURE INCREASED [None]
  - CARDIOMEGALY [None]
  - DRY MOUTH [None]
  - FATIGUE [None]
  - HEADACHE [None]
  - LYMPHADENOPATHY [None]
  - PALPITATIONS [None]
  - SLEEP APNOEA SYNDROME [None]
  - SNORING [None]
